FAERS Safety Report 16075130 (Version 1)
Quarter: 2019Q1

REPORT INFORMATION
  Report Type: Spontaneous
  Country: RO (occurrence: RO)
  Receive Date: 20190315
  Receipt Date: 20190315
  Transmission Date: 20190418
  Serious: Yes (Hospitalization, Other)
  Sender: FDA-Public Use
  Company Number: RO-TORRENT-00000148

PATIENT
  Age: 34 Year
  Sex: Female

DRUGS (10)
  1. TIAPRIDUM [Suspect]
     Active Substance: TIAPRIDE
     Indication: PSYCHOTIC SYMPTOM
     Dosage: 100 MG, PER DAY
  2. FLUOXETINE [Suspect]
     Active Substance: FLUOXETINE HYDROCHLORIDE
     Indication: PRODUCT USED FOR UNKNOWN INDICATION
     Dosage: 20 MG, PER DAY
  3. SODIUM VALPROATE [Suspect]
     Active Substance: VALPROATE SODIUM
     Indication: PRODUCT USED FOR UNKNOWN INDICATION
     Dosage: 1000 MG
  4. LORAZEPAM. [Suspect]
     Active Substance: LORAZEPAM
     Indication: PSYCHOTIC SYMPTOM
     Dosage: 2 MG, PER DAY
  5. AMISULPIRIDE [Suspect]
     Active Substance: AMISULPRIDE
     Indication: PSYCHOTIC DISORDER
     Dosage: 200 MG, QD
     Route: 065
     Dates: start: 2016, end: 2018
  6. OLANZAPINE. [Suspect]
     Active Substance: OLANZAPINE
     Indication: PSYCHOTIC SYMPTOM
     Dosage: 10 MG, PER DAY
     Dates: start: 2016
  7. TRIHEXYPHENIDYL [Suspect]
     Active Substance: TRIHEXYPHENIDYL
     Indication: PRODUCT USED FOR UNKNOWN INDICATION
     Dosage: 2 MG, PER DAY
  8. QUETIAPINE. [Suspect]
     Active Substance: QUETIAPINE
     Indication: PSYCHOTIC DISORDER
     Dosage: UNKNOWN
     Route: 065
     Dates: start: 2016, end: 2018
  9. ARIPIPRAZOLE. [Suspect]
     Active Substance: ARIPIPRAZOLE
     Indication: PSYCHOTIC DISORDER
     Dosage: UNKNOWN
     Route: 065
     Dates: start: 2016, end: 2018
  10. RISPERIDONE. [Suspect]
     Active Substance: RISPERIDONE
     Indication: HALLUCINATION
     Dosage: 3 ML, PER DAY

REACTIONS (9)
  - Psychotic disorder [Recovering/Resolving]
  - Hypokinesia [Recovering/Resolving]
  - Dystonia [Recovering/Resolving]
  - Extrapyramidal disorder [Unknown]
  - Parkinsonism [Recovering/Resolving]
  - Drug ineffective [Unknown]
  - Treatment noncompliance [Unknown]
  - Off label use [Unknown]
  - Treatment failure [Unknown]

NARRATIVE: CASE EVENT DATE: 2016
